FAERS Safety Report 7155924-1 (Version None)
Quarter: 2010Q4

REPORT INFORMATION
  Report Type: 
  Country: None (occurrence: None)
  Receive Date: 20101214
  Receipt Date: 20101206
  Transmission Date: 20110411
  Serious: Yes (Other)
  Sender: FDA-Public Use
  Company Number: US-BRISTOL-MYERS SQUIBB COMPANY-15424369

PATIENT
  Sex: Female

DRUGS (1)
  1. ONGLYZA [Suspect]
     Dates: start: 20090101

REACTIONS (1)
  - ANAPHYLACTIC SHOCK [None]
